FAERS Safety Report 7904598-8 (Version None)
Quarter: 2011Q4

REPORT INFORMATION
  Report Type: 
  Country: None (occurrence: None)
  Receive Date: 20111109
  Receipt Date: 20110224
  Transmission Date: 20120403
  Serious: Yes (Hospitalization)
  Sender: FDA-Public Use
  Company Number: US-GLAXOSMITHKLINE-A0915638A

PATIENT
  Age: 52 Year
  Sex: Male

DRUGS (1)
  1. AVANDIA [Suspect]
     Indication: DIABETES MELLITUS
     Dosage: 4MG PER DAY
     Route: 048
     Dates: start: 20040806, end: 20070101

REACTIONS (7)
  - CHEST PAIN [None]
  - TRANSIENT ISCHAEMIC ATTACK [None]
  - PAIN IN EXTREMITY [None]
  - ASTHENIA [None]
  - FATIGUE [None]
  - HYPERLIPIDAEMIA [None]
  - HEADACHE [None]
